FAERS Safety Report 6860723-1 (Version None)
Quarter: 2010Q3

REPORT INFORMATION
  Report Type: 
  Country: None (occurrence: None)
  Receive Date: 20100719
  Receipt Date: 20100719
  Transmission Date: 20110219
  Serious: Yes (Other)
  Sender: FDA-Public Use
  Company Number: None

PATIENT
  Age: 62 Year
  Sex: Female
  Weight: 90.7194 kg

DRUGS (5)
  1. ONGLYZA [Suspect]
     Indication: TYPE 1 DIABETES MELLITUS
     Dosage: 5MG ONCE DAILY PO
     Route: 048
     Dates: start: 20100616, end: 20100713
  2. LANTUS [Concomitant]
  3. HUMALOG [Concomitant]
  4. METFORMIN [Concomitant]
  5. GLIMIPERIDE [Concomitant]

REACTIONS (2)
  - PRURITUS [None]
  - RASH GENERALISED [None]
